FAERS Safety Report 5698784-8 (Version None)
Quarter: 2008Q2

REPORT INFORMATION
  Report Type: 
  Country: None (occurrence: None)
  Receive Date: 20080404
  Receipt Date: 20080213
  Transmission Date: 20081010
  Serious: Yes (Other)
  Sender: FDA-Public Use
  Company Number: 2008SP003199

PATIENT

DRUGS (1)
  1. PEGETRON (PEGINTERFERON ALFA-2B W/RIBAVIRIN) (PEGYLATED INTERFERON ALF [Suspect]
     Indication: DRUG USE FOR UNKNOWN INDICATION
     Dosage: SC, PO

REACTIONS (2)
  - CRANIAL NERVE DISORDER [None]
  - EYE DISORDER [None]
